FAERS Safety Report 5125982-4 (Version None)
Quarter: 2006Q4

REPORT INFORMATION
  Report Type: 
  Country: None (occurrence: None)
  Receive Date: 20061012
  Receipt Date: 20060830
  Transmission Date: 20070319
  Serious: Yes (Hospitalization, Disabling)
  Sender: FDA-Public Use
  Company Number: US-BRISTOL-MYERS SQUIBB COMPANY-13493234

PATIENT
  Age: 65 Year
  Sex: Male

DRUGS (3)
  1. CETUXIMAB [Suspect]
     Indication: LUNG CANCER METASTATIC
     Dosage: 200MG/M2
     Route: 042
     Dates: start: 20060818, end: 20060818
  2. CARBOPLATIN [Suspect]
     Indication: LUNG CANCER METASTATIC
     Dosage: 6.0 AUC
     Route: 042
     Dates: start: 20060818, end: 20060818
  3. PACLITAXEL [Suspect]
     Indication: LUNG CANCER METASTATIC
     Dosage: 225MG/M2
     Route: 042
     Dates: start: 20060818, end: 20060818

REACTIONS (3)
  - DEHYDRATION [None]
  - DIARRHOEA [None]
  - HYPOTENSION [None]
